FAERS Safety Report 10328941 (Version 1)
Quarter: 2014Q3

REPORT INFORMATION
  Report Type: Spontaneous
  Country: US (occurrence: US)
  Receive Date: 20140721
  Receipt Date: 20140721
  Transmission Date: 20150326
  Serious: Yes (Other)
  Sender: FDA-Public Use
  Company Number: CHPA2014US009538

PATIENT
  Age: 34 Year
  Sex: Female

DRUGS (9)
  1. ACYCLOVIR. [Concomitant]
     Active Substance: ACYCLOVIR
     Indication: HERPES VIRUS INFECTION
  2. PROGESTERONE. [Suspect]
     Active Substance: PROGESTERONE
     Dosage: UNK
     Dates: start: 20140321, end: 20140331
  3. OMEPRAZOLE. [Concomitant]
     Active Substance: OMEPRAZOLE
  4. WELLBUTRIN [Concomitant]
     Active Substance: BUPROPION HYDROCHLORIDE
     Dosage: 1 DF, QD
  5. ASCORBIC ACID. [Concomitant]
     Active Substance: ASCORBIC ACID
     Dosage: 1 DF, QD
  6. ECHINACEA PURPUREA [Concomitant]
     Active Substance: ECHINACEA PURPUREA
     Dosage: UNK, PRN
  7. EXCEDRIN [Suspect]
     Active Substance: ACETAMINOPHEN\ASPIRIN\CAFFEINE
     Indication: HEADACHE
     Dates: start: 20140313
  8. LUPRON [Suspect]
     Active Substance: LEUPROLIDE ACETATE
     Indication: ENDOMETRIOSIS
     Dosage: 3.75 MG, UNK
     Dates: start: 20140310, end: 20140321
  9. METOPROLOL [Concomitant]
     Active Substance: METOPROLOL
     Dosage: 12.5 MG, QD
     Route: 048

REACTIONS (21)
  - Condition aggravated [Recovering/Resolving]
  - Dysstasia [Recovering/Resolving]
  - Speech disorder [Recovering/Resolving]
  - Chest discomfort [Recovering/Resolving]
  - Nausea [Recovering/Resolving]
  - Insomnia [Recovering/Resolving]
  - Loss of consciousness [Recovering/Resolving]
  - Headache [Recovering/Resolving]
  - Feeling abnormal [Recovering/Resolving]
  - Drug ineffective [Unknown]
  - Paraesthesia [Recovering/Resolving]
  - Salivary hypersecretion [Recovering/Resolving]
  - Mood swings [Recovering/Resolving]
  - Crying [Recovering/Resolving]
  - Dizziness [Recovering/Resolving]
  - Asthenia [Recovering/Resolving]
  - Muscle tightness [Recovering/Resolving]
  - Musculoskeletal stiffness [Recovering/Resolving]
  - Memory impairment [Recovering/Resolving]
  - Hot flush [Recovering/Resolving]
  - Formication [Recovering/Resolving]

NARRATIVE: CASE EVENT DATE: 20140313
